FAERS Safety Report 18125668 (Version 1)
Quarter: 2020Q3

REPORT INFORMATION
  Report Type: Spontaneous
  Country: US (occurrence: US)
  Receive Date: 20200807
  Receipt Date: 20200807
  Transmission Date: 20201103
  Serious: Yes (Death, Other)
  Sender: FDA-Public Use
  Company Number: US-PURDUE-USA-2020-0151973

PATIENT
  Sex: Female
  Weight: 45.35 kg

DRUGS (1)
  1. OXYCONTIN [Suspect]
     Active Substance: OXYCODONE HYDROCHLORIDE
     Indication: ANALGESIC THERAPY
     Dosage: UNK
     Route: 048
     Dates: start: 200707, end: 20180904

REACTIONS (9)
  - Drug dependence [Unknown]
  - Chronic obstructive pulmonary disease [Unknown]
  - Peripheral artery thrombosis [Unknown]
  - Joint injury [Unknown]
  - Overdose [Fatal]
  - Hypotension [Unknown]
  - Drug abuse [Unknown]
  - Cardiomyopathy [Unknown]
  - Femur fracture [Unknown]
